FAERS Safety Report 7353415 (Version 5)
Quarter: 2014Q2

REPORT INFORMATION
  Report Type: Report from Study
  Country: JP (occurrence: JP)
  Receive Date: 20100413
  Receipt Date: 20140527
  Transmission Date: 20141212
  Serious: Yes (Death)
  Sender: FDA-Public Use
  Company Number: JP-PFIZER INC-2010045158

PATIENT
  Age: 57 Year
  Sex: Male
  Weight: 60 kg

DRUGS (9)
  1. NOVASTAN [Suspect]
     Indication: HEPARIN-INDUCED THROMBOCYTOPENIA
     Dosage: 0.7 UG/KG,1 IN 1 MIN
     Route: 041
     Dates: start: 20100330, end: 20100402
  2. NOVO HEPARIN [Concomitant]
     Dosage: UNK
     Route: 051
     Dates: start: 20100205
  3. FOSMICIN S [Concomitant]
     Route: 042
  4. MODACIN [Concomitant]
     Route: 042
  5. FOY [Concomitant]
     Route: 042
  6. NEUART [Concomitant]
     Route: 042
  7. CIPROXAN [Concomitant]
     Dosage: UNK
     Route: 042
  8. PROPOFOL [Concomitant]
     Dosage: UNK
     Route: 042
  9. MORPHINE HYDROCHLORIDE HYDRATE [Concomitant]
     Dosage: UNK
     Route: 042

REACTIONS (3)
  - Pneumonia [Fatal]
  - Lung neoplasm malignant [Fatal]
  - Disease progression [Fatal]
